FAERS Safety Report 6340792-8 (Version None)
Quarter: 2009Q3

REPORT INFORMATION
  Report Type: 
  Country: None (occurrence: None)
  Receive Date: 20090904
  Receipt Date: 20090826
  Transmission Date: 20100115
  Serious: Yes (Hospitalization, Other)
  Sender: FDA-Public Use
  Company Number: PHHY2009CA36631

PATIENT
  Sex: Male

DRUGS (1)
  1. DIOVAN [Suspect]
     Dosage: 160 MG, QD
     Route: 048
     Dates: start: 20090101, end: 20090821

REACTIONS (8)
  - BLADDER CANCER [None]
  - BLADDER OPERATION [None]
  - BLOOD PRESSURE DECREASED [None]
  - DIZZINESS [None]
  - HYPERSENSITIVITY [None]
  - PROSTATE CANCER [None]
  - PROSTATIC OPERATION [None]
  - RASH [None]
